FAERS Safety Report 19653505 (Version 1)
Quarter: 2021Q3

REPORT INFORMATION
  Report Type: Spontaneous
  Country: IT (occurrence: IT)
  Receive Date: 20210803
  Receipt Date: 20210803
  Transmission Date: 20211014
  Serious: Yes (Other)
  Sender: FDA-Public Use
  Company Number: IT-MYLANLABS-2021M1047621

PATIENT
  Age: 55 Year
  Sex: Female

DRUGS (1)
  1. METHOTREXATE. [Suspect]
     Active Substance: METHOTREXATE
     Indication: PSORIASIS
     Dosage: 15 MG, WEEKLY
     Route: 030
     Dates: start: 20161012, end: 20201016

REACTIONS (3)
  - Disease recurrence [Recovering/Resolving]
  - Drug ineffective [Recovering/Resolving]
  - Psoriasis [Recovering/Resolving]

NARRATIVE: CASE EVENT DATE: 20201016
